FAERS Safety Report 4491726-2 (Version None)
Quarter: 2004Q4

REPORT INFORMATION
  Report Type: 
  Country: None (occurrence: None)
  Receive Date: 20041103
  Receipt Date: 20040219
  Transmission Date: 20050328
  Serious: Yes (Hospitalization, Other)
  Sender: FDA-Public Use
  Company Number: US-MERCK-0402USA01542

PATIENT
  Age: 44 Year
  Sex: Female

DRUGS (4)
  1. VIOXX [Suspect]
     Indication: PAIN
     Route: 048
  2. PREMARIN [Concomitant]
     Route: 065
  3. TIAZAC [Concomitant]
     Route: 065
  4. VALIUM [Concomitant]
     Route: 065

REACTIONS (6)
  - ABDOMINAL HERNIA [None]
  - ANXIETY [None]
  - GASTRIC HAEMORRHAGE [None]
  - HEADACHE [None]
  - HEART RATE INCREASED [None]
  - OEDEMA PERIPHERAL [None]
